FAERS Safety Report 24192671 (Version 1)
Quarter: 2024Q3

REPORT INFORMATION
  Report Type: Spontaneous
  Country: US (occurrence: US)
  Receive Date: 20240809
  Receipt Date: 20240809
  Transmission Date: 20241016
  Serious: Yes (Hospitalization, Other)
  Sender: MERCK
  Company Number: US-009507513-2408USA001291

PATIENT
  Sex: Female

DRUGS (1)
  1. KEYTRUDA [Suspect]
     Active Substance: PEMBROLIZUMAB
     Indication: Triple negative breast cancer
     Dosage: UNK

REACTIONS (8)
  - Vomiting [Unknown]
  - Nausea [Unknown]
  - Breast conserving surgery [Unknown]
  - Dehydration [Unknown]
  - Renal impairment [Unknown]
  - Bone pain [Unknown]
  - Myalgia [Unknown]
  - Adrenal insufficiency [Unknown]

NARRATIVE: CASE EVENT DATE: 20240101
